FAERS Safety Report 12772699 (Version 5)
Quarter: 2016Q4

REPORT INFORMATION
  Report Type: Spontaneous
  Country: JP (occurrence: JP)
  Receive Date: 20160922
  Receipt Date: 20161114
  Transmission Date: 20170207
  Serious: Yes (Death, Hospitalization)
  Sender: FDA-Public Use
  Company Number: JP-JNJFOC-20160918396

PATIENT
  Age: 66 Year
  Sex: Male

DRUGS (8)
  1. LORAZEPAM. [Concomitant]
     Active Substance: LORAZEPAM
     Indication: SCHIZOPHRENIA
     Route: 048
     Dates: start: 20150624, end: 20160821
  2. HIRNAMIN [Concomitant]
     Active Substance: PHENOTHIAZINE
     Indication: SCHIZOPHRENIA
     Route: 048
     Dates: end: 20160821
  3. RISPERIDONE. [Concomitant]
     Active Substance: RISPERIDONE
     Indication: SCHIZOPHRENIA
     Route: 048
     Dates: start: 20160819, end: 20160821
  4. FLUNITRAZEPAM [Concomitant]
     Active Substance: FLUNITRAZEPAM
     Indication: SCHIZOPHRENIA
     Route: 048
     Dates: end: 20160821
  5. RIVOTRIL [Concomitant]
     Active Substance: CLONAZEPAM
     Indication: SCHIZOPHRENIA
     Route: 048
     Dates: end: 20160821
  6. XEPLION [Suspect]
     Active Substance: PALIPERIDONE PALMITATE
     Indication: SCHIZOPHRENIA
     Route: 030
     Dates: start: 20140212, end: 20160720
  7. TASMOLIN [Concomitant]
     Active Substance: BIPERIDEN
     Indication: PARKINSONISM
     Route: 048
     Dates: end: 20160821
  8. OLANZAPINE. [Concomitant]
     Active Substance: OLANZAPINE
     Indication: SCHIZOPHRENIA
     Route: 048
     Dates: start: 20160622, end: 20160821

REACTIONS (3)
  - Psychiatric symptom [Recovering/Resolving]
  - Cardiac failure acute [Fatal]
  - Insomnia [Unknown]

NARRATIVE: CASE EVENT DATE: 20160806
